FAERS Safety Report 9956497 (Version 2)
Quarter: 2014Q1

REPORT INFORMATION
  Report Type: Report from Study
  Country: US (occurrence: US)
  Receive Date: 20140304
  Receipt Date: 20140304
  Transmission Date: 20141002
  Serious: No
  Sender: FDA-Public Use
  Company Number: US-ABBVIE-12P-163-1011892-00

PATIENT
  Sex: Female
  Weight: 66.74 kg

DRUGS (12)
  1. HUMIRA [Suspect]
     Indication: RHEUMATOID ARTHRITIS
     Dates: start: 201203, end: 20130503
  2. HUMIRA [Suspect]
     Dates: end: 201202
  3. FOLIC ACID [Concomitant]
     Indication: PRODUCT USED FOR UNKNOWN INDICATION
  4. LEVOXYL [Concomitant]
     Indication: HYPOTHYROIDISM
  5. METHOTREXATE [Concomitant]
     Indication: RHEUMATOID ARTHRITIS
     Dosage: ORIGINAL DOSE
  6. METHOTREXATE [Concomitant]
     Dosage: HALF OF PREVIOUS DOSE
     Dates: end: 201202
  7. METHOTREXATE [Concomitant]
     Dosage: BACK TO ORIGINAL DOSE
     Dates: start: 201202
  8. PLAQUENIL [Concomitant]
     Indication: RHEUMATOID ARTHRITIS
  9. TRAMADOL [Concomitant]
     Indication: PRODUCT USED FOR UNKNOWN INDICATION
  10. VITAMIN D [Concomitant]
     Indication: VITAMIN SUPPLEMENTATION
  11. ZOCOR [Concomitant]
     Indication: PRODUCT USED FOR UNKNOWN INDICATION
  12. SIMVASTATIN [Concomitant]
     Indication: BLOOD CHOLESTEROL INCREASED

REACTIONS (7)
  - Cystitis [Recovered/Resolved]
  - Drug ineffective [Recovered/Resolved]
  - Rheumatoid arthritis [Recovered/Resolved]
  - Cystitis [Recovered/Resolved]
  - Nasopharyngitis [Recovered/Resolved]
  - Cystitis [Recovered/Resolved]
  - Gastrointestinal infection [Recovered/Resolved]
